FAERS Safety Report 8199322-0 (Version None)
Quarter: 2012Q1

REPORT INFORMATION
  Report Type: 
  Country: None (occurrence: None)
  Receive Date: 20120309
  Receipt Date: 20120308
  Transmission Date: 20120608
  Serious: No
  Sender: FDA-Public Use
  Company Number: US-B.I. PHARMACEUTICALS,INC./RIDGEFIELD-2012-BP-04410BP

PATIENT
  Age: 66 Year
  Sex: Male

DRUGS (11)
  1. TOPROL-XL [Concomitant]
     Indication: GLAUCOMA
  2. PANTOPRAZOLE [Concomitant]
     Indication: GASTROOESOPHAGEAL REFLUX DISEASE
  3. FUROSEMIDE [Concomitant]
  4. LOSARTAN POTASSIUM [Concomitant]
  5. NIFEDIPINE [Concomitant]
  6. HYDRALAZINE HCL [Concomitant]
     Indication: HYPERTENSION
     Dosage: 25 MG
  7. SIMVASTATIN [Concomitant]
     Indication: HYPERTENSION
  8. GLIMEPIRIDE [Concomitant]
     Indication: TYPE 2 DIABETES MELLITUS
  9. TRADJENTA [Suspect]
     Indication: TYPE 2 DIABETES MELLITUS
     Dosage: 5 MG
     Route: 048
     Dates: start: 20120216
  10. LOSARTAN POTASSIUM [Suspect]
     Indication: HYPERTENSION
     Dates: start: 20120201
  11. TAMSULOSIN HCL [Concomitant]
     Indication: BENIGN PROSTATIC HYPERPLASIA

REACTIONS (4)
  - BLOOD GLUCOSE INCREASED [None]
  - RHINORRHOEA [None]
  - LETHARGY [None]
  - COUGH [None]
